FAERS Safety Report 15480492 (Version 1)
Quarter: 2018Q4

REPORT INFORMATION
  Report Type: Report from Study
  Country: None (occurrence: US)
  Receive Date: 20181010
  Receipt Date: 20181010
  Transmission Date: 20190205
  Serious: Yes (Hospitalization, Other)
  Sender: FDA-Public Use
  Company Number: US-ABBVIE-18K-163-2440532-00

PATIENT
  Age: 54 Year
  Sex: Male
  Weight: 88.53 kg

DRUGS (3)
  1. IBUPROFEN. [Concomitant]
     Active Substance: IBUPROFEN
     Indication: PRODUCT USED FOR UNKNOWN INDICATION
  2. HUMIRA [Suspect]
     Active Substance: ADALIMUMAB
     Indication: PSORIATIC ARTHROPATHY
     Route: 058
     Dates: start: 2002, end: 201711
  3. HUMIRA [Suspect]
     Active Substance: ADALIMUMAB
     Indication: PSORIASIS
     Route: 058
     Dates: start: 201803

REACTIONS (12)
  - Lung perforation [Recovered/Resolved]
  - Knee arthroplasty [Recovering/Resolving]
  - Cervical vertebral fracture [Recovering/Resolving]
  - Aortic rupture [Recovered/Resolved]
  - Hand fracture [Recovering/Resolving]
  - Femur fracture [Recovering/Resolving]
  - Road traffic accident [Recovering/Resolving]
  - Intestinal perforation [Recovered/Resolved]
  - Lower limb fracture [Recovering/Resolving]
  - Wrist fracture [Recovering/Resolving]
  - Dyspnoea [Recovered/Resolved]
  - Rib fracture [Recovering/Resolving]

NARRATIVE: CASE EVENT DATE: 20171116
